FAERS Safety Report 7631462-4 (Version None)
Quarter: 2011Q3

REPORT INFORMATION
  Report Type: 
  Country: None (occurrence: None)
  Receive Date: 20110725
  Receipt Date: 20110711
  Transmission Date: 20111222
  Serious: Yes (Hospitalization)
  Sender: FDA-Public Use
  Company Number: NL-MEDIMMUNE-MEDI-0013341

PATIENT
  Sex: Male
  Weight: 0.695 kg

DRUGS (4)
  1. SYNAGIS [Suspect]
     Route: 030
     Dates: start: 20101005, end: 20101228
  2. SYNAGIS [Suspect]
     Route: 030
     Dates: start: 20110125, end: 20110419
  3. SPIRONOLACTONE HCT [Concomitant]
     Dosage: 1 MG/ML
  4. OMEPRAZOLE [Concomitant]

REACTIONS (7)
  - RESPIRATORY SYNCYTIAL VIRUS INFECTION [None]
  - STRIDOR [None]
  - RHINOVIRUS INFECTION [None]
  - NASOPHARYNGITIS [None]
  - DYSPNOEA [None]
  - WHEEZING [None]
  - COUGH [None]
